FAERS Safety Report 9193154 (Version 1)
Quarter: 2013Q1

REPORT INFORMATION
  Report Type: Spontaneous
  Country: US (occurrence: None)
  Receive Date: 20130318
  Receipt Date: 20130318
  Transmission Date: 20140127
  Serious: Yes (Other)
  Sender: FDA-Public Use
  Company Number: 2013034945

PATIENT
  Sex: Female

DRUGS (2)
  1. PRIVIGEN (IMMUNE GLOBULIN INTRAVENOUS (HUMAN) 10% LIQUID) [Suspect]
     Indication: HYPOGAMMAGLOBULINAEMIA
     Dosage: 40 G 1X/MONTH INTRAVENOUS
     Route: 042
  2. PRIVIGEN (IMMUNE GLOBULIN INTRAVENOUS (HUMAN) 10% LIQUID) [Suspect]
     Indication: BLOOD IMMUNOGLOBULIN E INCREASED
     Dosage: 40 G 1X/MONTH INTRAVENOUS
     Route: 042

REACTIONS (14)
  - Vomiting [None]
  - Chills [None]
  - Headache [None]
  - Eye disorder [None]
  - Pyrexia [None]
  - Photophobia [None]
  - Influenza [None]
  - Eye infection [None]
  - Ear infection [None]
  - Rhinitis [None]
  - Pharyngitis [None]
  - Kidney infection [None]
  - Blood immunoglobulin G decreased [None]
  - Blood immunoglobulin E increased [None]
